FAERS Safety Report 12514854 (Version 3)
Quarter: 2020Q4

REPORT INFORMATION
  Report Type: Spontaneous
  Country: US (occurrence: US)
  Receive Date: 20160630
  Receipt Date: 20201119
  Transmission Date: 20210113
  Serious: Yes (Life-Threatening, Hospitalization)
  Sender: FDA-Public Use
  Company Number: US-JNJFOC-20160526022

PATIENT
  Age: 52 Year
  Sex: Male
  Weight: 85 kg

DRUGS (2)
  1. COUMADIN [Suspect]
     Active Substance: WARFARIN SODIUM
     Indication: PRODUCT USED FOR UNKNOWN INDICATION
     Route: 065
  2. XARELTO [Suspect]
     Active Substance: RIVAROXABAN
     Indication: DEEP VEIN THROMBOSIS
     Dosage: 15 MG AND 20 MG, DAILY
     Route: 048
     Dates: start: 20150423, end: 20150828

REACTIONS (2)
  - Haematuria [Recovering/Resolving]
  - Oesophageal varices haemorrhage [Recovering/Resolving]

NARRATIVE: CASE EVENT DATE: 20150802
